FAERS Safety Report 24216637 (Version 1)
Quarter: 2024Q3

REPORT INFORMATION
  Report Type: Spontaneous
  Country: US (occurrence: US)
  Receive Date: 20240816
  Receipt Date: 20240816
  Transmission Date: 20241016
  Serious: Yes (Other)
  Sender: MERCK
  Company Number: US-009507513-2408USA005133

PATIENT
  Age: 74 Year
  Sex: Male

DRUGS (13)
  1. WELIREG [Suspect]
     Active Substance: BELZUTIFAN
     Indication: Renal cancer
     Dosage: 120 MILLIGRAM (3 TABLETS OF 40 MG), QD
     Route: 048
     Dates: start: 20240627
  2. CABOMETYX [Suspect]
     Active Substance: CABOZANTINIB S-MALATE
     Indication: Renal cancer
     Dosage: 20 MILLIGRAM, QD
     Route: 048
     Dates: start: 20210915
  3. CABOMETYX [Suspect]
     Active Substance: CABOZANTINIB S-MALATE
     Dosage: 20 MG, (TAKE 1 TABLET BY MOUTH ONCE DAILY FOR 20 DAYS ON, THEN 10 DAYS OFF)
     Route: 048
  4. CABOMETYX [Suspect]
     Active Substance: CABOZANTINIB S-MALATE
     Dosage: 1 TABLET BY MOUTH ONCE DAILY ALTERNATING WITH 2 TABLETS BY MOUTH DAILY FOR 20 DAYS (DAILY DOSE REPOR
     Route: 048
  5. AMLODIPINE [Concomitant]
     Active Substance: AMLODIPINE BESYLATE
  6. ARMODAFINIL [Concomitant]
     Active Substance: ARMODAFINIL
  7. ESOMEPRAZOLE [Concomitant]
     Active Substance: ESOMEPRAZOLE
  8. FLOMAX [Concomitant]
     Active Substance: TAMSULOSIN HYDROCHLORIDE
  9. LEVETIRACETAM [Concomitant]
     Active Substance: LEVETIRACETAM
  10. LEVOTHYROXINE [Concomitant]
     Active Substance: LEVOTHYROXINE\LEVOTHYROXINE SODIUM
  11. LISINOPRIL [Concomitant]
     Active Substance: LISINOPRIL
  12. ROPINIROLE [Concomitant]
     Active Substance: ROPINIROLE
  13. SIMVASTATIN [Concomitant]
     Active Substance: SIMVASTATIN

REACTIONS (2)
  - Oxygen saturation decreased [Unknown]
  - Blood gases abnormal [Unknown]

NARRATIVE: CASE EVENT DATE: 20240101
